FAERS Safety Report 20847394 (Version 3)
Quarter: 2022Q2

REPORT INFORMATION
  Report Type: Report from Study
  Country: JP (occurrence: JP)
  Receive Date: 20220519
  Receipt Date: 20220628
  Transmission Date: 20220720
  Serious: Yes (Hospitalization, Other)
  Sender: FDA-Public Use
  Company Number: JP-INSMED-2022-00766-JPAA

PATIENT
  Age: 61 Year
  Sex: Female

DRUGS (2)
  1. ARIKAYCE [Suspect]
     Active Substance: AMIKACIN
     Indication: Product used for unknown indication
     Dosage: UNK
     Route: 055
     Dates: start: 20220310, end: 20220318
  2. ARIKAYCE [Suspect]
     Active Substance: AMIKACIN
     Dosage: UNK, ONCE EVERY THREE DAYS
     Route: 055
     Dates: start: 20220324

REACTIONS (8)
  - Lung disorder [Unknown]
  - Disease progression [Unknown]
  - Ocular discomfort [Unknown]
  - Somnolence [Unknown]
  - Dizziness [Recovered/Resolved]
  - Diarrhoea [Recovered/Resolved]
  - Cough [Recovering/Resolving]
  - Off label use [Unknown]

NARRATIVE: CASE EVENT DATE: 20220101
